FAERS Safety Report 5245364-4 (Version None)
Quarter: 2007Q1

REPORT INFORMATION
  Report Type: 
  Country: None (occurrence: None)
  Receive Date: 20070223
  Receipt Date: 20070214
  Transmission Date: 20070707
  Serious: Yes (Other)
  Sender: FDA-Public Use
  Company Number: HQWYE336103JAN07

PATIENT
  Age: 65 Year
  Sex: Male

DRUGS (1)
  1. CORDARONE [Suspect]
     Dosage: 200 MG TABLET, DOSAGE AND FREQUENCY UNSPECIFIED
     Route: 048

REACTIONS (1)
  - PULMONARY OEDEMA [None]
